FAERS Safety Report 5668918-X (Version None)
Quarter: 2008Q1

REPORT INFORMATION
  Report Type: 
  Country: None (occurrence: None)
  Receive Date: 20080317
  Receipt Date: 20071102
  Transmission Date: 20080703
  Serious: Yes (Other)
  Sender: FDA-Public Use
  Company Number: RO-NOVOPROD-268552

PATIENT
  Sex: Female
  Weight: 110 kg

DRUGS (2)
  1. ACTRAPID [Suspect]
     Indication: DRUG USE FOR UNKNOWN INDICATION
     Dosage: 50 IU, QD
     Route: 058
     Dates: start: 20070818
  2. INSULATARD [Suspect]
     Indication: DRUG USE FOR UNKNOWN INDICATION
     Dosage: 24 IU, QD
     Route: 058
     Dates: start: 20070818

REACTIONS (1)
  - PRE-ECLAMPSIA [None]
